FAERS Safety Report 11771996 (Version 1)
Quarter: 2015Q4

REPORT INFORMATION
  Report Type: Spontaneous
  Country: US (occurrence: None)
  Receive Date: 20151123
  Receipt Date: 20151123
  Transmission Date: 20160304
  Serious: Yes (Disabling)
  Sender: FDA-Public Use
  Company Number: None

PATIENT
  Age: 41 Year
  Sex: Female
  Weight: 106.6 kg

DRUGS (2)
  1. WILSON SOLUTION WITH GENTAMICIN [Suspect]
     Active Substance: GENTAMICIN
     Indication: ENTEROBACTER INFECTION
     Dosage: TWICE A DAY TWICE DAILY RINSE THROUGH SINUS CAVITY
     Route: 045
     Dates: start: 20151002, end: 20151117
  2. IRON SUPPLEMENT [Concomitant]
     Active Substance: IRON

REACTIONS (13)
  - Tinnitus [None]
  - Vertigo [None]
  - Hearing impaired [None]
  - Malaise [None]
  - Swelling face [None]
  - Ear swelling [None]
  - Periorbital oedema [None]
  - Fatigue [None]
  - Fall [None]
  - Therapy cessation [None]
  - Vision blurred [None]
  - Confusional state [None]
  - Vomiting [None]

NARRATIVE: CASE EVENT DATE: 20151002
